FAERS Safety Report 21335817 (Version 2)
Quarter: 2022Q3

REPORT INFORMATION
  Report Type: Spontaneous
  Country: US (occurrence: US)
  Receive Date: 20220915
  Receipt Date: 20220929
  Transmission Date: 20221026
  Serious: No
  Sender: FDA-Public Use
  Company Number: US-JNJFOC-20220908931

PATIENT
  Age: 71 Year
  Sex: Female

DRUGS (1)
  1. ERDAFITINIB [Suspect]
     Active Substance: ERDAFITINIB
     Indication: Product used for unknown indication
     Route: 048
     Dates: start: 20220722

REACTIONS (3)
  - Nail discolouration [Unknown]
  - Alopecia [Unknown]
  - Nail bed tenderness [Unknown]

NARRATIVE: CASE EVENT DATE: 20220101
